FAERS Safety Report 10350569 (Version 1)
Quarter: 2014Q3

REPORT INFORMATION
  Report Type: Spontaneous
  Country: US (occurrence: US)
  Receive Date: 20140730
  Receipt Date: 20140730
  Transmission Date: 20150326
  Serious: No
  Sender: FDA-Public Use
  Company Number: US-BRISTOL-MYERS SQUIBB COMPANY-21106125

PATIENT
  Age: 62 Year
  Sex: Male
  Weight: 104.31 kg

DRUGS (4)
  1. HCTZ [Concomitant]
     Active Substance: HYDROCHLOROTHIAZIDE
  2. ENALAPRIL [Concomitant]
     Active Substance: ENALAPRIL
  3. METFORMIN [Concomitant]
     Active Substance: METFORMIN HYDROCHLORIDE
  4. FARXIGA [Suspect]
     Active Substance: DAPAGLIFLOZIN PROPANEDIOL
     Indication: TYPE 2 DIABETES MELLITUS
     Dosage: #1427
     Route: 048

REACTIONS (6)
  - Peripheral coldness [Unknown]
  - Paraesthesia [Unknown]
  - Drug ineffective [Unknown]
  - Dizziness [Unknown]
  - Pain in extremity [Unknown]
  - Peripheral swelling [Unknown]
